FAERS Safety Report 5267566-3 (Version None)
Quarter: 2007Q1

REPORT INFORMATION
  Report Type: 
  Country: None (occurrence: None)
  Receive Date: 20070316
  Receipt Date: 20070307
  Transmission Date: 20070707
  Serious: Yes (Other)
  Sender: FDA-Public Use
  Company Number: IE-ABBOTT-07P-229-0361427-00

PATIENT
  Age: 55 Year
  Sex: Female

DRUGS (1)
  1. HUMIRA [Suspect]
     Indication: RHEUMATOID ARTHRITIS
     Dates: start: 20060401

REACTIONS (5)
  - ANGIOSARCOMA [None]
  - CHEST X-RAY ABNORMAL [None]
  - INTRAVASCULAR PAPILLARY ENDOTHELIAL HYPERPLASIA [None]
  - RESPIRATORY DISORDER [None]
  - SARCOMA [None]
